FAERS Safety Report 20697659 (Version 1)
Quarter: 2022Q2

REPORT INFORMATION
  Report Type: Report from Study
  Country: ZA (occurrence: ZA)
  Receive Date: 20220411
  Receipt Date: 20220411
  Transmission Date: 20220721
  Serious: Yes (Other)
  Sender: FDA-Public Use
  Company Number: ZA-NOVARTISPH-NVSC2022ZA034327

PATIENT
  Sex: Male

DRUGS (1)
  1. BROLUCIZUMAB [Suspect]
     Active Substance: BROLUCIZUMAB
     Indication: Neovascular age-related macular degeneration
     Dosage: 27.6 MG, QMO, (27.6MG IN 0.23ML)
     Route: 047
     Dates: start: 20210626

REACTIONS (3)
  - Optic atrophy [Unknown]
  - Iridocyclitis [Unknown]
  - Eye inflammation [Not Recovered/Not Resolved]
